FAERS Safety Report 25420463 (Version 1)
Quarter: 2025Q2

REPORT INFORMATION
  Report Type: Spontaneous
  Country: ES (occurrence: ES)
  Receive Date: 20250611
  Receipt Date: 20250611
  Transmission Date: 20250717
  Serious: Yes (Life-Threatening, Hospitalization, Other)
  Sender: AMGEN
  Company Number: None

PATIENT
  Age: 75 Year
  Sex: Male
  Weight: 53.8 kg

DRUGS (4)
  1. AFLIBERCEPT [Suspect]
     Active Substance: AFLIBERCEPT
     Indication: Colorectal adenocarcinoma
     Dosage: DOSAGE 5TH CYCLE: 4 MG/KG: 284 MG FIRST CYCLE 17/FEB/2025
     Route: 040
     Dates: start: 20250217, end: 20250423
  2. FLUOROURACIL [Suspect]
     Active Substance: FLUOROURACIL
     Indication: Colorectal adenocarcinoma
     Dosage: 5TH CYCLE: 339.73 MG/MMETER SQUARE: 615 MG FIRST CYCLE 17/FEB/2025 (INJECTABLE OR INFUSION SOLUTION)
     Route: 040
     Dates: start: 20250217, end: 20250423
  3. IRINOTECAN [Suspect]
     Active Substance: IRINOTECAN
     Indication: Colorectal adenocarcinoma
     Dosage: 5TH CYCLE: 339.73 MG/METER SQUARE: 615 MG FIRST CYCLE 17/FEB/2025
     Route: 040
     Dates: start: 20250217, end: 20250423
  4. LEUCOVORIN [Suspect]
     Active Substance: LEUCOVORIN\LEUCOVORIN CALCIUM
     Indication: Colorectal adenocarcinoma
     Dosage: 724 MILLIGRAM, Q2WK
     Route: 040
     Dates: start: 20250217, end: 20250423

REACTIONS (6)
  - Atrioventricular block [Recovered/Resolved]
  - Ventricular dysfunction [Not Recovered/Not Resolved]
  - Pharyngeal inflammation [Recovered/Resolved]
  - Pancytopenia [Recovered/Resolved]
  - Agranulocytosis [Recovered/Resolved]
  - Cardiomyopathy acute [Not Recovered/Not Resolved]

NARRATIVE: CASE EVENT DATE: 20250503
